FAERS Safety Report 20870399 (Version 4)
Quarter: 2022Q3

REPORT INFORMATION
  Report Type: Spontaneous
  Country: FR (occurrence: FR)
  Receive Date: 20220525
  Receipt Date: 20220708
  Transmission Date: 20221026
  Serious: Yes (Death, Life-Threatening, Other)
  Sender: FDA-Public Use
  Company Number: None

PATIENT
  Age: 51 Year
  Sex: Female
  Weight: 136 kg

DRUGS (7)
  1. HEPARIN SODIUM [Suspect]
     Active Substance: HEPARIN SODIUM
     Indication: Pulmonary embolism
     Dosage: 40000 IU, QD
     Route: 041
     Dates: start: 20220131, end: 20220201
  2. LOVENOX [Suspect]
     Active Substance: ENOXAPARIN SODIUM
     Indication: Pulmonary embolism
     Dosage: UNK
     Route: 058
     Dates: start: 20220121, end: 20220127
  3. APIXABAN [Suspect]
     Active Substance: APIXABAN
     Dosage: 10 MG, BID
     Route: 065
     Dates: start: 20220127, end: 20220129
  4. APIXABAN [Suspect]
     Active Substance: APIXABAN
     Dosage: 5 MG, BID (WITH A LAST INTAKE ON 31/01 IN THE MORNING)
     Route: 065
     Dates: start: 20220130, end: 20220131
  5. AMOXICILLIN/CLAVULANIC ACID [AMOXICILLIN SODIUM;CLAVULANATE POTASSIUM] [Concomitant]
     Indication: Antibiotic therapy
     Dosage: UNK
     Route: 065
     Dates: start: 20220123
  6. CEFOTAXIME [Concomitant]
     Active Substance: CEFOTAXIME SODIUM
     Indication: Antibiotic therapy
     Dosage: UNK
     Route: 065
     Dates: start: 20220131
  7. SPIRAMYCIN [Concomitant]
     Active Substance: SPIRAMYCIN
     Indication: Antibiotic therapy
     Dosage: UNK
     Route: 065
     Dates: start: 20220131

REACTIONS (5)
  - Cardio-respiratory arrest [Fatal]
  - Shock haemorrhagic [Fatal]
  - Thrombosis [Not Recovered/Not Resolved]
  - Disseminated intravascular coagulation [Not Recovered/Not Resolved]
  - Heparin-induced thrombocytopenia [Recovered/Resolved]

NARRATIVE: CASE EVENT DATE: 20220131
